FAERS Safety Report 16840341 (Version 3)
Quarter: 2019Q4

REPORT INFORMATION
  Report Type: Spontaneous
  Country: US (occurrence: US)
  Receive Date: 20190923
  Receipt Date: 20191029
  Transmission Date: 20200122
  Serious: Yes (Other)
  Sender: FDA-Public Use
  Company Number: US-PFIZER INC-2019405249

PATIENT
  Age: 74 Year
  Sex: Female
  Weight: 54.43 kg

DRUGS (1)
  1. XALKORI [Suspect]
     Active Substance: CRIZOTINIB
     Indication: LUNG CANCER METASTATIC
     Dosage: 250 MG, 2X/DAY
     Route: 048
     Dates: start: 20190919

REACTIONS (12)
  - Neoplasm progression [Unknown]
  - Secretion discharge [Unknown]
  - Insomnia [Unknown]
  - Malaise [Recovering/Resolving]
  - Second primary malignancy [Unknown]
  - Nausea [Unknown]
  - Chest discomfort [Unknown]
  - Hepatocellular carcinoma [Unknown]
  - Foreign body in respiratory tract [Unknown]
  - Vomiting [Unknown]
  - Osteolysis [Unknown]
  - Hiatus hernia [Unknown]
